FAERS Safety Report 9361082 (Version 1)
Quarter: 2013Q2

REPORT INFORMATION
  Report Type: Report from Study
  Country: US (occurrence: US)
  Receive Date: 20130621
  Receipt Date: 20130621
  Transmission Date: 20140414
  Serious: Yes (Hospitalization)
  Sender: FDA-Public Use
  Company Number: US-ABBOTT-13P-163-1106363-00

PATIENT
  Age: 90 Year
  Sex: Male
  Weight: 92 kg

DRUGS (1)
  1. ANDROGEL [Suspect]
     Indication: BLOOD TESTOSTERONE DECREASED
     Route: 061

REACTIONS (3)
  - Abdominal distension [Recovered/Resolved]
  - Local swelling [Recovered/Resolved]
  - Cardiac failure [Recovered/Resolved]
